FAERS Safety Report 23849345 (Version 1)
Quarter: 2024Q2

REPORT INFORMATION
  Report Type: Spontaneous
  Country: US (occurrence: None)
  Receive Date: 20240512
  Receipt Date: 20240512
  Transmission Date: 20240716
  Serious: Yes (Hospitalization)
  Sender: FDA-Public Use
  Company Number: None

PATIENT
  Age: 28 Year
  Sex: Male
  Weight: 105 kg

DRUGS (1)
  1. BUPROPION HYDROCHLORIDE [Suspect]
     Active Substance: BUPROPION HYDROCHLORIDE
     Indication: Adjustment disorder
     Dosage: 150 MG EVERY DAY PO
     Route: 048
     Dates: start: 20200219, end: 20200228

REACTIONS (1)
  - Rash [None]

NARRATIVE: CASE EVENT DATE: 20200301
